FAERS Safety Report 5514328-5 (Version None)
Quarter: 2007Q4

REPORT INFORMATION
  Report Type: 
  Country: None (occurrence: None)
  Receive Date: 20071113
  Receipt Date: 20070416
  Transmission Date: 20080405
  Serious: No
  Sender: FDA-Public Use
  Company Number: A0647439A

PATIENT
  Age: 79 Year
  Sex: Female

DRUGS (11)
  1. COREG [Suspect]
     Dosage: 6.25MG TWICE PER DAY
     Route: 048
  2. LOVASTATIN [Concomitant]
  3. NORVASC [Concomitant]
  4. LANOXIN [Concomitant]
  5. DIOVAN [Concomitant]
  6. FUROSEMIDE [Concomitant]
  7. SPIRONOLACTONE [Concomitant]
  8. ZOLOFT [Concomitant]
  9. ASPIRIN [Concomitant]
  10. MULTI-VITAMIN [Concomitant]
  11. CALCIUM + D [Concomitant]

REACTIONS (1)
  - EXTRASYSTOLES [None]
